FAERS Safety Report 6656479-8 (Version None)
Quarter: 2010Q1

REPORT INFORMATION
  Report Type: 
  Country: None (occurrence: None)
  Receive Date: 20100329
  Receipt Date: 20100317
  Transmission Date: 20100710
  Serious: Yes (Other)
  Sender: FDA-Public Use
  Company Number: GB-PFIZER INC-2010034103

PATIENT
  Age: 25 Year
  Sex: Female
  Weight: 64.5 kg

DRUGS (3)
  1. CHAMPIX [Suspect]
     Indication: SMOKING CESSATION THERAPY
     Dosage: 1 MG, UNK
     Route: 048
     Dates: start: 20100216, end: 20100302
  2. LEVONORGESTREL [Concomitant]
     Indication: CONTRACEPTION
     Dosage: 30 UG, UNK
     Route: 048
     Dates: start: 20100226
  3. SYMBICORT [Concomitant]
     Indication: ASTHMA
     Dosage: UNK
     Route: 055
     Dates: start: 20100106

REACTIONS (6)
  - DIARRHOEA [None]
  - FEELING ABNORMAL [None]
  - MUSCLE TWITCHING [None]
  - SOMNOLENCE [None]
  - TREMOR [None]
  - VOMITING [None]
